FAERS Safety Report 6540402-0 (Version None)
Quarter: 2010Q1

REPORT INFORMATION
  Report Type: 
  Country: None (occurrence: None)
  Receive Date: 20100113
  Receipt Date: 20100108
  Transmission Date: 20100710
  Serious: Yes (Death, Other)
  Sender: FDA-Public Use
  Company Number: 1000011199

PATIENT
  Age: 69 Year
  Sex: Female

DRUGS (7)
  1. BYSTOLIC [Suspect]
     Indication: HYPERTENSION
     Dosage: 5 MG (5 MG, 1 IN 1 D), ORAL
     Route: 048
     Dates: start: 20091101, end: 20091228
  2. COZAAR [Concomitant]
  3. SPIRIVA [Concomitant]
  4. SYMBICORT [Concomitant]
  5. XOPENEX [Concomitant]
  6. NEXIUM [Concomitant]
  7. MELOXICAM [Concomitant]

REACTIONS (1)
  - LUNG NEOPLASM MALIGNANT [None]
